FAERS Safety Report 7755571-4 (Version None)
Quarter: 2011Q3

REPORT INFORMATION
  Report Type: 
  Country: None (occurrence: None)
  Receive Date: 20110916
  Receipt Date: 20110914
  Transmission Date: 20111222
  Serious: Yes (Other)
  Sender: FDA-Public Use
  Company Number: JP-PFIZER INC-2011213990

PATIENT
  Age: 70 Year
  Sex: Male

DRUGS (1)
  1. MIGLITOL [Suspect]
     Dosage: UNK
     Route: 048
     Dates: start: 20101015, end: 20110214

REACTIONS (1)
  - HEPATIC FUNCTION ABNORMAL [None]
